FAERS Safety Report 25752313 (Version 1)
Quarter: 2025Q3

REPORT INFORMATION
  Report Type: Spontaneous
  Country: EU (occurrence: EU)
  Receive Date: 20250902
  Receipt Date: 20250902
  Transmission Date: 20251020
  Serious: Yes (Other)
  Sender: JAZZ
  Company Number: EU-PHARMAMAR-2025PM000610

PATIENT

DRUGS (1)
  1. ZEPZELCA [Suspect]
     Active Substance: LURBINECTEDIN
     Indication: Small cell lung cancer

REACTIONS (2)
  - Extravasation [Unknown]
  - Necrosis [Unknown]

NARRATIVE: CASE EVENT DATE: 20250801
